FAERS Safety Report 6167043-1 (Version None)
Quarter: 2009Q2

REPORT INFORMATION
  Report Type: 
  Country: None (occurrence: None)
  Receive Date: 20090424
  Receipt Date: 20090414
  Transmission Date: 20091009
  Serious: Yes (Other)
  Sender: FDA-Public Use
  Company Number: DE-PFIZER INC-2009195648

PATIENT

DRUGS (4)
  1. ZELDOX [Suspect]
     Indication: PSYCHOTIC DISORDER
     Dosage: 40-60MG/DAY
     Route: 048
     Dates: start: 20090101
  2. ZELDOX [Interacting]
     Indication: MANIA
     Dosage: 80MG/DAY
     Route: 048
     Dates: start: 20080101, end: 20090101
  3. ZELDOX [Interacting]
     Indication: DEPRESSION
  4. ESCITALOPRAM [Interacting]
     Indication: MANIA
     Dosage: 10MG/DAY
     Route: 048
     Dates: start: 20090101

REACTIONS (5)
  - ANXIETY DISORDER [None]
  - ASTHENIA [None]
  - DRUG INTERACTION [None]
  - MANIA [None]
  - TREMOR [None]
